FAERS Safety Report 9725115 (Version 2)
Quarter: 2013Q4

REPORT INFORMATION
  Report Type: Spontaneous
  Country: US (occurrence: US)
  Receive Date: 20131203
  Receipt Date: 20131224
  Transmission Date: 20140711
  Serious: Yes (Death, Hospitalization)
  Sender: FDA-Public Use
  Company Number: US-BIOGENIDEC-2013BI114338

PATIENT
  Age: 34 Year
  Sex: Male

DRUGS (9)
  1. TECFIDERA [Suspect]
     Indication: MULTIPLE SCLEROSIS
     Route: 048
     Dates: start: 20130928
  2. TECFIDERA [Suspect]
     Indication: MULTIPLE SCLEROSIS
     Route: 048
  3. SINGULAIR [Concomitant]
  4. RISPERIDONE [Concomitant]
  5. VALPROIC ACID [Concomitant]
  6. BENZTROPINE [Concomitant]
  7. KEPPRA [Concomitant]
  8. LORAZEPAM [Concomitant]
  9. COPAXONE [Concomitant]

REACTIONS (1)
  - Hypoxic-ischaemic encephalopathy [Fatal]
